FAERS Safety Report 5592678-4 (Version None)
Quarter: 2007Q4

REPORT INFORMATION
  Report Type: 
  Country: None (occurrence: None)
  Receive Date: 20071218
  Receipt Date: 20070531
  Transmission Date: 20080405
  Serious: Yes (Hospitalization, Other)
  Sender: FDA-Public Use
  Company Number: 2006139957

PATIENT
  Age: 57 Year
  Sex: Male

DRUGS (3)
  1. BEXTRA [Suspect]
     Indication: FIBROMYALGIA
     Dosage: 20 MG (20 MG, 1 IN 1 D)
     Dates: start: 20030828
  2. CELEBREX [Suspect]
     Indication: SCIATICA
     Dosage: 1 IN 1 D
     Dates: start: 19991101
  3. VIOXX [Suspect]
     Indication: FIBROMYALGIA
     Dates: start: 20001128

REACTIONS (1)
  - CARDIOMYOPATHY [None]
